FAERS Safety Report 9241668 (Version 1)
Quarter: 2013Q2

REPORT INFORMATION
  Report Type: Spontaneous
  Country: AU (occurrence: AU)
  Receive Date: 20130419
  Receipt Date: 20130419
  Transmission Date: 20140414
  Serious: Yes (Disabling)
  Sender: FDA-Public Use
  Company Number: AU-009507513-1304AUS007941

PATIENT
  Sex: Female
  Weight: 74 kg

DRUGS (1)
  1. VYTORIN [Suspect]
     Dosage: 1 DOSE UNSPEC 1 TIME
     Route: 048
     Dates: start: 20120813, end: 20130125

REACTIONS (1)
  - Hepatic function abnormal [Unknown]
